FAERS Safety Report 11156997 (Version 1)
Quarter: 2015Q2

REPORT INFORMATION
  Report Type: Spontaneous
  Country: DE (occurrence: FR)
  Receive Date: 20150602
  Receipt Date: 20150602
  Transmission Date: 20150821
  Serious: Yes (Hospitalization)
  Sender: FDA-Public Use
  Company Number: DE-ACTELION-A-US2009-24663

PATIENT
  Age: 82 Year
  Sex: Male

DRUGS (10)
  1. LASILIX [Concomitant]
     Active Substance: FUROSEMIDE
     Dosage: 60 MG, UNK
  2. DIFFU K [Concomitant]
     Active Substance: POTASSIUM CHLORIDE
  3. LANZOR [Concomitant]
     Active Substance: LANSOPRAZOLE
  4. STABLON [Concomitant]
     Active Substance: TIANEPTINE
  5. VENTAVIS [Suspect]
     Active Substance: ILOPROST
     Dosage: 10 UG QD
     Route: 055
     Dates: start: 2008, end: 20081224
  6. VENTAVIS [Suspect]
     Active Substance: ILOPROST
     Dosage: 5 UG QD
     Route: 055
     Dates: start: 20090202, end: 20090211
  7. PREVISCAN [Concomitant]
     Active Substance: FLUINDIONE
  8. VENTAVIS [Suspect]
     Active Substance: ILOPROST
     Indication: PULMONARY ARTERIAL HYPERTENSION
     Dosage: 20 MCG, QD
     Route: 055
     Dates: start: 200804, end: 2008
  9. ATACAND [Concomitant]
     Active Substance: CANDESARTAN CILEXETIL
  10. PERMIXON [Concomitant]
     Active Substance: SAW PALMETTO

REACTIONS (9)
  - Hypocalcaemia [Recovered/Resolved]
  - Abnormal behaviour [Recovered/Resolved]
  - Weight decreased [Recovered/Resolved]
  - Malaise [Recovered/Resolved]
  - Dyspepsia [Recovered/Resolved]
  - Nausea [Recovered/Resolved]
  - Hypokalaemia [Unknown]
  - Hypercreatinaemia [Unknown]
  - Hypotension [Recovered/Resolved]

NARRATIVE: CASE EVENT DATE: 2008
